FAERS Safety Report 20011038 (Version 2)
Quarter: 2021Q4

REPORT INFORMATION
  Report Type: Report from Study
  Country: IT (occurrence: IT)
  Receive Date: 20211029
  Receipt Date: 20211129
  Transmission Date: 20220303
  Serious: Yes (Other)
  Sender: FDA-Public Use
  Company Number: IT-CELLTRION INC.-2021IT014616

PATIENT

DRUGS (10)
  1. TRUXIMA [Suspect]
     Active Substance: RITUXIMAB-ABBS
     Indication: B-cell lymphoma
     Dosage: 700 MG, CYCLIC
     Route: 042
     Dates: start: 20210716, end: 20210716
  2. ACYCLOVIR [Concomitant]
     Active Substance: ACYCLOVIR
     Indication: Prophylaxis
     Dosage: 800 MG
     Route: 048
  3. BACTRIM [Concomitant]
     Active Substance: SULFAMETHOXAZOLE\TRIMETHOPRIM
     Indication: Prophylaxis
     Dosage: 960 MG
     Route: 048
  4. ONDANSETRON HYDROCHLORIDE [Concomitant]
     Active Substance: ONDANSETRON HYDROCHLORIDE
     Indication: B-cell lymphoma
     Dosage: 8 MG
     Route: 042
     Dates: start: 20210717, end: 20210720
  5. METHYLPREDNISOLONE HEMISUCCINATE [Concomitant]
     Active Substance: METHYLPREDNISOLONE HEMISUCCINATE
     Indication: B-cell lymphoma
     Dosage: 40 MG
     Route: 042
     Dates: start: 20210717, end: 20210721
  6. VINCRISTINE SULFATE [Concomitant]
     Active Substance: VINCRISTINE SULFATE
     Indication: B-cell lymphoma
     Dosage: 0.7 MG
     Route: 042
     Dates: start: 20210717, end: 20210720
  7. DOXORUBICIN HYDROCHLORIDE [Concomitant]
     Active Substance: DOXORUBICIN HYDROCHLORIDE
     Indication: B-cell lymphoma
     Dosage: 18 MG
     Route: 042
     Dates: start: 20210717, end: 20210720
  8. CYCLOPHOSPHAMIDE [Concomitant]
     Active Substance: CYCLOPHOSPHAMIDE
     Indication: B-cell lymphoma
     Dosage: 1400 MG
     Route: 042
     Dates: start: 20210721, end: 20210721
  9. ALLOPURINOL [Concomitant]
     Active Substance: ALLOPURINOL
     Indication: Prophylaxis
     Dosage: 300 MG
     Route: 048
  10. ETOPOSIDE [Concomitant]
     Active Substance: ETOPOSIDE
     Indication: B-cell lymphoma
     Dosage: 90 MG
     Route: 042
     Dates: start: 20210717, end: 20210720

REACTIONS (2)
  - Neutropenia [Recovered/Resolved]
  - Overdose [Unknown]

NARRATIVE: CASE EVENT DATE: 20210804
